FAERS Safety Report 6175662-1 (Version None)
Quarter: 2009Q2

REPORT INFORMATION
  Report Type: 
  Country: None (occurrence: None)
  Receive Date: 20090429
  Receipt Date: 20090416
  Transmission Date: 20091009
  Serious: Yes (Hospitalization)
  Sender: FDA-Public Use
  Company Number: 2009CD0094

PATIENT
  Age: 4 Year
  Sex: Male

DRUGS (1)
  1. CEDAX [Suspect]
     Indication: UPPER RESPIRATORY TRACT INFECTION
     Dosage: 110 MG, DAILY
     Dates: start: 20090213, end: 20090220

REACTIONS (1)
  - ENTEROCOLITIS HAEMORRHAGIC [None]
